FAERS Safety Report 4718508-8 (Version None)
Quarter: 2005Q3

REPORT INFORMATION
  Report Type: 
  Country: None (occurrence: None)
  Receive Date: 20050719
  Receipt Date: 20050422
  Transmission Date: 20060218
  Serious: Yes (Hospitalization, Other)
  Sender: FDA-Public Use
  Company Number: 2005065909

PATIENT
  Sex: Female
  Weight: 61.2356 kg

DRUGS (5)
  1. CELEBREX [Suspect]
     Indication: PAIN
     Dosage: UNKNOWN (UNKNOWN), ORAL
     Route: 048
  2. ULTRACET [Concomitant]
  3. ALL OTHER THERAPEUTIC PRODUCTS (ALL OTHER THERAPEUTIC PRODUCTS) [Concomitant]
  4. AMLODIPINE BESYLATE [Concomitant]
  5. HYDROCHLOROTHIAZIDE [Concomitant]

REACTIONS (4)
  - JAUNDICE [None]
  - MYOCARDIAL INFARCTION [None]
  - PYREXIA [None]
  - VOMITING [None]
